FAERS Safety Report 7059686-8 (Version None)
Quarter: 2010Q4

REPORT INFORMATION
  Report Type: 
  Country: None (occurrence: None)
  Receive Date: 20101025
  Receipt Date: 20101013
  Transmission Date: 20110411
  Serious: Yes (Other)
  Sender: FDA-Public Use
  Company Number: GB-ACTELION-A-CH2010-40632

PATIENT
  Age: 59 Year
  Sex: Male
  Weight: 95.4 kg

DRUGS (1)
  1. MIGLUSTAT CAPSULE 100 MG EU [Suspect]
     Indication: GAUCHER'S DISEASE
     Dosage: 100 MG, TID
     Route: 048
     Dates: start: 20070223

REACTIONS (3)
  - CELL MARKER INCREASED [None]
  - CHITOTRIOSIDASE INCREASED [None]
  - PLATELET COUNT DECREASED [None]
